FAERS Safety Report 8798223 (Version 1)
Quarter: 2012Q4

REPORT INFORMATION
  Report Type: 
  Country: US (occurrence: US)
  Receive Date: 20120920
  Receipt Date: 20120920
  Transmission Date: 20130627
  Serious: Yes (Hospitalization, Disabling, Other)
  Sender: FDA-Public Use
  Company Number: US-009507513-2011SP040941

PATIENT

DRUGS (1)
  1. NUVARING [Suspect]
     Indication: CONTRACEPTION
     Dates: start: 2009, end: 20090905

REACTIONS (7)
  - Hypercoagulation [Unknown]
  - Haematoma [Recovering/Resolving]
  - Haemorrhagic anaemia [Recovered/Resolved]
  - Pulmonary embolism [Recovered/Resolved]
  - Deep vein thrombosis [Unknown]
  - Smear cervix abnormal [Unknown]
  - Pulmonary granuloma [Not Recovered/Not Resolved]
